FAERS Safety Report 8430361-8 (Version None)
Quarter: 2012Q2

REPORT INFORMATION
  Report Type: 
  Country: None (occurrence: None)
  Receive Date: 20120612
  Receipt Date: 20120611
  Transmission Date: 20120825
  Serious: Yes (Death, Life-Threatening)
  Sender: FDA-Public Use
  Company Number: ID-BAYER-2012-012848

PATIENT
  Age: 25 Year
  Sex: Female

DRUGS (1)
  1. NEXAVAR [Suspect]
     Dosage: 200 MG, BID
     Route: 048
     Dates: start: 20090727

REACTIONS (3)
  - HAEMOGLOBIN DECREASED [None]
  - HEPATIC FAILURE [None]
  - DIARRHOEA [None]
